FAERS Safety Report 11475048 (Version 1)
Quarter: 2015Q3

REPORT INFORMATION
  Report Type: Spontaneous
  Country: US (occurrence: None)
  Receive Date: 20150908
  Receipt Date: 20150908
  Transmission Date: 20151125
  Serious: No
  Sender: FDA-Public Use
  Company Number: None

PATIENT
  Age: 74 Year
  Sex: Male
  Weight: 89.5 kg

DRUGS (8)
  1. GENERAL ANESTHESIA [Concomitant]
     Active Substance: UNSPECIFIED INGREDIENT
  2. HEPARIN [Suspect]
     Active Substance: HEPARIN SODIUM
     Indication: ANEURYSM REPAIR
     Dates: start: 20150903, end: 20150903
  3. HEPARIN [Suspect]
     Active Substance: HEPARIN SODIUM
     Indication: ANEURYSM REPAIR
     Dates: start: 20150903, end: 20150903
  4. FENOFIBRATE. [Concomitant]
     Active Substance: FENOFIBRATE
  5. DIGOXIN. [Concomitant]
     Active Substance: DIGOXIN
  6. METOPROLOL [Concomitant]
     Active Substance: METOPROLOL
  7. LISINOPRIL. [Concomitant]
     Active Substance: LISINOPRIL
  8. RIVAROXABAN [Concomitant]
     Active Substance: RIVAROXABAN

REACTIONS (2)
  - Product quality issue [None]
  - Coagulation time abnormal [None]

NARRATIVE: CASE EVENT DATE: 20150903
